FAERS Safety Report 5799238-0 (Version None)
Quarter: 2008Q3

REPORT INFORMATION
  Report Type: 
  Country: None (occurrence: None)
  Receive Date: 20080702
  Receipt Date: 20080624
  Transmission Date: 20090109
  Serious: Yes (Life-Threatening, Hospitalization)
  Sender: FDA-Public Use
  Company Number: JP-PFIZER INC-2008046573

PATIENT
  Sex: Female
  Weight: 51 kg

DRUGS (1)
  1. SALAZOPYRIN [Suspect]
     Indication: PROCTOCOLITIS
     Dosage: DAILY DOSE:1000MG
     Dates: start: 20080321, end: 20080501

REACTIONS (1)
  - GRANULOCYTE COUNT DECREASED [None]
